FAERS Safety Report 10901187 (Version 3)
Quarter: 2015Q2

REPORT INFORMATION
  Report Type: Spontaneous
  Country: US (occurrence: None)
  Receive Date: 20150303
  Receipt Date: 20150505
  Transmission Date: 20150821
  Serious: Yes (Hospitalization, Other)
  Sender: FDA-Public Use
  Company Number: ADR-2015-00422

PATIENT
  Age: 81 Year
  Sex: Female

DRUGS (8)
  1. ASPIRIN. [Suspect]
     Active Substance: ASPIRIN
  2. FENOFIBRATE. [Suspect]
     Active Substance: FENOFIBRATE
  3. LISINOPRIL. [Suspect]
     Active Substance: LISINOPRIL
  4. BACLOFEN (ORAL) [Suspect]
     Active Substance: BACLOFEN
  5. FLUOXETINE [Suspect]
     Active Substance: FLUOXETINE\FLUOXETINE HYDROCHLORIDE
  6. LEVOTHYROXINE [Suspect]
     Active Substance: LEVOTHYROXINE
  7. OMEPRAZOLE. [Suspect]
     Active Substance: OMEPRAZOLE
  8. PRAVASTATIN [Suspect]
     Active Substance: PRAVASTATIN\PRAVASTATIN SODIUM

REACTIONS (12)
  - Renal impairment [None]
  - Encephalopathy [None]
  - Dysarthria [None]
  - Delusion [None]
  - Mental status changes [None]
  - Toxic encephalopathy [None]
  - Head injury [None]
  - Gait disturbance [None]
  - Confusional state [None]
  - Ataxia [None]
  - Fall [None]
  - Joint injury [None]

NARRATIVE: CASE EVENT DATE: 20150101
